FAERS Safety Report 17093892 (Version 4)
Quarter: 2020Q2

REPORT INFORMATION
  Report Type: Report from Study
  Country: GB (occurrence: GB)
  Receive Date: 20191129
  Receipt Date: 20200528
  Transmission Date: 20200713
  Serious: Yes (Hospitalization)
  Sender: FDA-Public Use
  Company Number: GB-B.I. PHARMACEUTICALS,INC./RIDGEFIELD-2019-BI-019283

PATIENT
  Age: 17 Year
  Sex: Female
  Weight: 50.6 kg

DRUGS (6)
  1. LEVOTHYROXINE SODIUM. [Concomitant]
     Active Substance: LEVOTHYROXINE SODIUM
     Indication: HYPOTHYROIDISM
     Route: 048
  2. AFATINIB [Suspect]
     Active Substance: AFATINIB
     Indication: CHOROID PLEXUS CARCINOMA
     Dosage: FORMULATION WAS BASED ON AGE (FILM COATED TABLET OR ORAL SOLUTION)
     Route: 048
     Dates: start: 20190411, end: 20190425
  3. AFATINIB [Suspect]
     Active Substance: AFATINIB
     Indication: METASTASIS
     Route: 048
     Dates: start: 20190521, end: 20190831
  4. LEVOTHYROXINE SODIUM. [Concomitant]
     Active Substance: LEVOTHYROXINE SODIUM
     Indication: HYPOPITUITARISM
  5. AFATINIB [Suspect]
     Active Substance: AFATINIB
     Indication: MALIGNANT NEOPLASM OF SPINAL CORD
     Dosage: 50% OF AED, EQUIVALENT PAEDIATRIC DOSE 12MG/M^2
     Route: 048
     Dates: start: 20190502, end: 20190511
  6. LOESTRIN NOS [Concomitant]
     Active Substance: ETHINYL ESTRADIOL\NORETHINDRONE ACETATE
     Indication: HYPOPITUITARISM
     Dosage: FORM STRENGTH: 30
     Route: 065

REACTIONS (4)
  - Stomatitis [Recovered/Resolved]
  - Blood creatinine increased [Not Recovered/Not Resolved]
  - Diarrhoea [Recovered/Resolved]
  - Blood bicarbonate decreased [Not Recovered/Not Resolved]

NARRATIVE: CASE EVENT DATE: 20190411
